FAERS Safety Report 6380048-0 (Version None)
Quarter: 2009Q3

REPORT INFORMATION
  Report Type: 
  Country: None (occurrence: None)
  Receive Date: 20090928
  Receipt Date: 20090925
  Transmission Date: 20100115
  Serious: Yes (Other)
  Sender: FDA-Public Use
  Company Number: FR-MERCK-0906FRA00056

PATIENT
  Age: 42 Year
  Sex: Female

DRUGS (7)
  1. ISENTRESS [Suspect]
     Indication: HIV INFECTION
     Route: 048
     Dates: start: 20080225
  2. EMTRICITABINE AND TENOFOVIR DISOPROXIL FUMARATE [Suspect]
     Indication: HIV INFECTION
     Route: 048
     Dates: start: 20080225
  3. CITALOPRAM HYDROBROMIDE [Concomitant]
     Route: 048
  4. ROSUVASTATIN CALCIUM [Concomitant]
     Route: 048
  5. ASPIRIN LYSINE [Concomitant]
     Route: 048
  6. RAMIPRIL [Concomitant]
     Route: 048
  7. BISOPROLOL FUMARATE [Concomitant]
     Route: 048

REACTIONS (2)
  - MUSCLE RUPTURE [None]
  - MUSCULOSKELETAL PAIN [None]
